FAERS Safety Report 6651834-4 (Version None)
Quarter: 2010Q1

REPORT INFORMATION
  Report Type: 
  Country: None (occurrence: None)
  Receive Date: 20100325
  Receipt Date: 20100317
  Transmission Date: 20100710
  Serious: Yes (Hospitalization)
  Sender: FDA-Public Use
  Company Number: US-MPIJNJ-2010-01483

PATIENT
  Age: 48 Year
  Sex: Male
  Weight: 91.4 kg

DRUGS (3)
  1. VELCADE [Suspect]
     Indication: GLIOBLASTOMA MULTIFORME
     Dosage: 1.3 MG/M2, CYCLIC
     Route: 042
     Dates: start: 20100219, end: 20100222
  2. VORINOSTAT [Suspect]
     Indication: GLIOBLASTOMA MULTIFORME
     Dosage: 400 MG, CYCLIC
     Route: 048
     Dates: start: 20100219, end: 20100225
  3. DEXAMETHASONE [Concomitant]
     Indication: DRUG USE FOR UNKNOWN INDICATION

REACTIONS (1)
  - PERSONALITY CHANGE [None]
